FAERS Safety Report 17913955 (Version 1)
Quarter: 2020Q2

REPORT INFORMATION
  Report Type: Spontaneous
  Country: FR (occurrence: FR)
  Receive Date: 20200618
  Receipt Date: 20200618
  Transmission Date: 20200714
  Serious: Yes (Hospitalization)
  Sender: FDA-Public Use
  Company Number: FR-PFIZER INC-2020235365

PATIENT
  Age: 29 Year
  Sex: Male

DRUGS (1)
  1. LYRICA [Suspect]
     Active Substance: PREGABALIN
     Dosage: 5 DF
     Route: 048

REACTIONS (3)
  - Poisoning [Recovered/Resolved]
  - Somnolence [Recovered/Resolved]
  - Drug dependence [Unknown]
